FAERS Safety Report 17171695 (Version 2)
Quarter: 2020Q2

REPORT INFORMATION
  Report Type: Spontaneous
  Country: US (occurrence: US)
  Receive Date: 20191218
  Receipt Date: 20200424
  Transmission Date: 20200713
  Serious: Yes (Other)
  Sender: FDA-Public Use
  Company Number: US-TEVA-2019-US-1154245

PATIENT

DRUGS (3)
  1. CLONAZEPAM ACTAVIS [Suspect]
     Active Substance: CLONAZEPAM
     Indication: ANXIETY DISORDER
     Dosage: 2 MILLIGRAM DAILY; DISP. QTY: 90
     Route: 065
     Dates: start: 20191027, end: 20191103
  2. CLONAZEPAM ACTAVIS [Suspect]
     Active Substance: CLONAZEPAM
     Indication: POST-TRAUMATIC STRESS DISORDER
  3. CLONAZEPAM ACTAVIS [Suspect]
     Active Substance: CLONAZEPAM
     Indication: GENERALISED ANXIETY DISORDER

REACTIONS (22)
  - Diplopia [Unknown]
  - Injury [Not Recovered/Not Resolved]
  - Toxicity to various agents [Unknown]
  - Product use in unapproved indication [Unknown]
  - Fall [Not Recovered/Not Resolved]
  - Dizziness [Unknown]
  - Back injury [Unknown]
  - Balance disorder [Unknown]
  - Insomnia [Unknown]
  - Vision blurred [Not Recovered/Not Resolved]
  - Head injury [Unknown]
  - Contusion [Unknown]
  - Joint injury [Unknown]
  - Agitation [Unknown]
  - Feeling abnormal [Not Recovered/Not Resolved]
  - Staphylococcal infection [Unknown]
  - Syncope [Unknown]
  - Muscular weakness [Unknown]
  - Hypoaesthesia [Unknown]
  - Product substitution issue [Unknown]
  - Limb injury [Unknown]
  - Dizziness [Not Recovered/Not Resolved]

NARRATIVE: CASE EVENT DATE: 2019
